FAERS Safety Report 19413595 (Version 1)
Quarter: 2021Q2

REPORT INFORMATION
  Report Type: Report from Study
  Country: KR (occurrence: KR)
  Receive Date: 20210614
  Receipt Date: 20210614
  Transmission Date: 20210717
  Serious: Yes (Hospitalization, Other)
  Sender: FDA-Public Use
  Company Number: KR-JNJFOC-20210627989

PATIENT
  Sex: Male
  Weight: 68 kg

DRUGS (22)
  1. XARELTO [Suspect]
     Active Substance: RIVAROXABAN
     Indication: EMBOLISM ARTERIAL
     Dosage: 15 MG, QD
     Route: 048
     Dates: start: 20200803, end: 20200901
  2. TRANSAMIN [Concomitant]
     Active Substance: TRANEXAMIC ACID
     Dosage: 750 MG
     Route: 048
     Dates: start: 20200713
  3. MUTERAN [Concomitant]
     Active Substance: ACETYLCYSTEINE
     Dosage: 200 MG
     Route: 048
     Dates: start: 20191128
  4. MOROXACIN [Concomitant]
     Indication: PNEUMONIA
     Dosage: 400 MG
     Route: 048
     Dates: start: 20200904, end: 20200904
  5. TRITACE [Concomitant]
     Active Substance: RAMIPRIL
     Dosage: 5 MG
     Route: 048
     Dates: start: 20060522
  6. GLUCOVANCE [GLIBENCLAMIDE;METFORMIN HYDROCHLORIDE] [Concomitant]
     Dosage: 2.5 MG
     Route: 048
     Dates: start: 20060105
  7. LASIX [Concomitant]
     Active Substance: FUROSEMIDE
     Indication: PNEUMONIA
     Dosage: 20 MG
     Route: 048
     Dates: start: 20180426
  8. LASIX [Concomitant]
     Active Substance: FUROSEMIDE
     Indication: PNEUMONIA
     Dosage: 20 MG
     Route: 042
     Dates: start: 202009, end: 202009
  9. CORDARONE [Concomitant]
     Active Substance: AMIODARONE HYDROCHLORIDE
     Dosage: 200 MG
     Route: 048
     Dates: start: 20190822
  10. NEXIUM I.V. [Concomitant]
     Active Substance: ESOMEPRAZOLE SODIUM
     Indication: HAEMOPTYSIS
     Dosage: 20 MG
     Route: 048
     Dates: start: 20200713
  11. SIMVAST [Concomitant]
     Dosage: 20 MG
     Route: 048
     Dates: start: 20060522
  12. DUOCET [HYDROCODONE BITARTRATE;PARACETAMOL] [Concomitant]
     Dosage: UNK
     Route: 048
     Dates: start: 20200608
  13. TAZOCIN [Concomitant]
     Active Substance: PIPERACILLIN SODIUM\TAZOBACTAM SODIUM
     Dosage: 9 G
     Route: 042
     Dates: start: 20200903, end: 20200913
  14. ISOTRIL [Concomitant]
     Active Substance: ISOSORBIDE MONONITRATE
     Dosage: 60 MG
     Route: 048
     Dates: start: 20180426
  15. XARELTO [Suspect]
     Active Substance: RIVAROXABAN
     Indication: ATRIAL FIBRILLATION
     Route: 048
  16. CODEIN [Concomitant]
     Active Substance: CODEINE
     Dosage: 60 MG
     Route: 048
     Dates: start: 20200713
  17. ATROVENT [Concomitant]
     Active Substance: IPRATROPIUM BROMIDE
     Indication: PNEUMONIA
     Dosage: 6 ML
     Route: 042
     Dates: start: 20200903, end: 20200914
  18. SALBUTAMOL [Concomitant]
     Active Substance: ALBUTEROL
     Indication: PNEUMONIA
     Dosage: 7.5 ML
     Dates: start: 20200903, end: 20200914
  19. XARELTO [Suspect]
     Active Substance: RIVAROXABAN
     Indication: CEREBROVASCULAR ACCIDENT PROPHYLAXIS
     Dosage: 15 MG, QD
     Route: 048
     Dates: start: 20200806, end: 20201207
  20. BANAN [Concomitant]
     Active Substance: CEFPODOXIME PROXETIL
     Indication: HAEMOPTYSIS
     Dosage: 200 MG
     Route: 048
     Dates: start: 20200713
  21. AVELOX [Concomitant]
     Active Substance: MOXIFLOXACIN HYDROCHLORIDE
     Indication: PNEUMONIA
     Dosage: 400 MG
     Route: 042
     Dates: start: 20200902, end: 20200908
  22. DENOGAN [Concomitant]
     Active Substance: PROPACETAMOL HYDROCHLORIDE
     Indication: PNEUMONIA
     Dosage: UNK
     Route: 042
     Dates: start: 20200902, end: 20200903

REACTIONS (1)
  - Pneumonia [Recovered/Resolved]

NARRATIVE: CASE EVENT DATE: 20200902
